FAERS Safety Report 25469011 (Version 1)
Quarter: 2025Q2

REPORT INFORMATION
  Report Type: Spontaneous
  Country: CN (occurrence: CN)
  Receive Date: 20250623
  Receipt Date: 20250623
  Transmission Date: 20250717
  Serious: Yes (Other)
  Sender: GLAXOSMITHKLINE
  Company Number: CN-GSK-CN2025GSK078146

PATIENT
  Age: 51 Year
  Sex: Female

DRUGS (6)
  1. NIRAPARIB [Suspect]
     Active Substance: NIRAPARIB
     Indication: Ovarian cancer recurrent
     Dosage: 300 MG, QD
  2. NIRAPARIB [Suspect]
     Active Substance: NIRAPARIB
     Indication: Ovarian epithelial cancer stage III
  3. CARBOPLATIN [Concomitant]
     Active Substance: CARBOPLATIN
     Indication: Ovarian cancer recurrent
  4. CARBOPLATIN [Concomitant]
     Active Substance: CARBOPLATIN
     Indication: Ovarian epithelial cancer stage III
  5. PACLITAXEL [Concomitant]
     Active Substance: PACLITAXEL
     Indication: Ovarian cancer recurrent
  6. PACLITAXEL [Concomitant]
     Active Substance: PACLITAXEL
     Indication: Ovarian epithelial cancer stage III

REACTIONS (3)
  - Cardiac dysfunction [Recovering/Resolving]
  - Cardiac failure [Recovering/Resolving]
  - Cardiotoxicity [Recovering/Resolving]
